FAERS Safety Report 10649253 (Version 1)
Quarter: 2014Q4

REPORT INFORMATION
  Report Type: Spontaneous
  Country: CH (occurrence: None)
  Receive Date: 20141210
  Receipt Date: 20141210
  Transmission Date: 20150529
  Serious: Yes (Hospitalization)
  Sender: FDA-Public Use
  Company Number: CH-017985

PATIENT
  Age: 69 Year
  Sex: Female

DRUGS (5)
  1. PICOPREP [Suspect]
     Active Substance: CITRIC ACID MONOHYDRATE\MAGNESIUM OXIDE\SODIUM PICOSULFATE
     Indication: BOWEL PREPARATION
     Route: 048
     Dates: start: 20141202, end: 20141203
  2. CALCIMAGON [Concomitant]
     Active Substance: CALCIUM
  3. ESOMEP [Concomitant]
     Active Substance: ESOMEPRAZOLE
  4. CANSARTAN [Concomitant]
  5. CHONDROSULF [Concomitant]
     Active Substance: CHONDROITIN SULFATE (CHICKEN)

REACTIONS (2)
  - Hyponatraemia [None]
  - Epilepsy [None]

NARRATIVE: CASE EVENT DATE: 20141203
